FAERS Safety Report 23132895 (Version 1)
Quarter: 2023Q4

REPORT INFORMATION
  Report Type: Report from Study
  Country: US (occurrence: US)
  Receive Date: 20231101
  Receipt Date: 20231101
  Transmission Date: 20240109
  Serious: Yes (Other)
  Sender: FDA-Public Use
  Company Number: US-002147023-NVSC2023US229539

PATIENT
  Sex: Female
  Weight: 102.06 kg

DRUGS (1)
  1. COSENTYX [Suspect]
     Active Substance: SECUKINUMAB
     Indication: Psoriasis
     Dosage: UNK
     Route: 065

REACTIONS (9)
  - Psoriatic arthropathy [Unknown]
  - Arthralgia [Unknown]
  - Arthritis [Unknown]
  - Psoriasis [Unknown]
  - Skin burning sensation [Unknown]
  - Skin exfoliation [Unknown]
  - Pruritus [Unknown]
  - Skin plaque [Unknown]
  - Therapeutic product effect incomplete [Unknown]
